FAERS Safety Report 16014986 (Version 1)
Quarter: 2019Q1

REPORT INFORMATION
  Report Type: Spontaneous
  Country: US (occurrence: US)
  Receive Date: 20190227
  Receipt Date: 20190227
  Transmission Date: 20190418
  Serious: No
  Sender: FDA-Public Use
  Company Number: US-GLENMARK PHARMACEUTICALS-2019GMK039205

PATIENT

DRUGS (6)
  1. COREG [Concomitant]
     Active Substance: CARVEDILOL
     Indication: HYPERTENSION
     Dosage: UNK
     Route: 065
  2. LANTUS [Concomitant]
     Active Substance: INSULIN GLARGINE
     Indication: DIABETES MELLITUS
     Dosage: UNK
     Route: 065
  3. CLOTRIMAZOLE/BETAMETHASONE DIPROPIONATE CREAM USP [Suspect]
     Active Substance: BETAMETHASONE DIPROPIONATE\CLOTRIMAZOLE
     Dosage: UNK, BID
     Route: 061
     Dates: start: 20181217, end: 20190102
  4. LISINOPRIL. [Concomitant]
     Active Substance: LISINOPRIL
     Indication: HYPERTENSION
     Dosage: UNK
     Route: 065
  5. NORVASC [Concomitant]
     Active Substance: AMLODIPINE BESYLATE
     Indication: HYPERTENSION
     Dosage: UNK
     Route: 065
  6. CLOTRIMAZOLE/BETAMETHASONE DIPROPIONATE CREAM USP [Suspect]
     Active Substance: BETAMETHASONE DIPROPIONATE\CLOTRIMAZOLE
     Indication: CHRONIC PIGMENTED PURPURA
     Dosage: UNK, BID
     Route: 061
     Dates: start: 20180920, end: 20180920

REACTIONS (8)
  - Application site rash [Not Recovered/Not Resolved]
  - Application site pain [Recovered/Resolved]
  - Eye irritation [Recovered/Resolved]
  - Nasal discomfort [Recovered/Resolved]
  - Application site erythema [Unknown]
  - Blood pressure increased [Recovered/Resolved]
  - Dry mouth [Recovered/Resolved]
  - Product use in unapproved indication [Unknown]

NARRATIVE: CASE EVENT DATE: 20180920
